FAERS Safety Report 8317362-5 (Version None)
Quarter: 2012Q2

REPORT INFORMATION
  Report Type: 
  Country: None (occurrence: None)
  Receive Date: 20120427
  Receipt Date: 20120417
  Transmission Date: 20120825
  Serious: Yes (Hospitalization, Other)
  Sender: FDA-Public Use
  Company Number: US-ELI_LILLY_AND_COMPANY-US201111008627

PATIENT
  Sex: Female

DRUGS (13)
  1. FORTEO [Suspect]
     Dosage: 20 UG, QD
  2. LASIX [Concomitant]
  3. ISOSORBIDE DINITRATE [Concomitant]
  4. POTASSIUM CHLORIDE [Concomitant]
  5. SIMVASTATIN [Concomitant]
  6. FORTEO [Suspect]
     Indication: OSTEOPOROSIS
     Dosage: 20 UG, QD
     Dates: start: 20110101
  7. ALBUTEROL [Concomitant]
  8. CARVEDILOL [Concomitant]
  9. VITAMIN D [Concomitant]
  10. ASPIRIN [Concomitant]
  11. FORTEO [Suspect]
     Dosage: 20 UG, QD
  12. LACTOBACILLUS [Concomitant]
     Dosage: UNK, BID
  13. THYROID [Concomitant]

REACTIONS (7)
  - PNEUMONIA [None]
  - BACK PAIN [None]
  - DRUG DOSE OMISSION [None]
  - PAIN IN EXTREMITY [None]
  - ARTERIOSCLEROSIS [None]
  - ANAEMIA [None]
  - JOINT INJURY [None]
